FAERS Safety Report 4491028-4 (Version None)
Quarter: 2004Q4

REPORT INFORMATION
  Report Type: 
  Country: None (occurrence: None)
  Receive Date: 20041102
  Receipt Date: 20041027
  Transmission Date: 20050328
  Serious: Yes (Other)
  Sender: FDA-Public Use
  Company Number: US-MERCK-0410USA04109

PATIENT
  Sex: Male

DRUGS (6)
  1. ZETIA [Suspect]
     Indication: BLOOD CHOLESTEROL INCREASED
     Route: 048
  2. LOPID [Concomitant]
     Route: 065
  3. ZOLOFT [Concomitant]
     Route: 065
  4. REMERON [Concomitant]
     Route: 065
  5. ZYPREXA [Concomitant]
     Route: 065
  6. RIMANTADINE HYDROCHLORIDE [Concomitant]
     Route: 065

REACTIONS (1)
  - BLOOD CREATINE PHOSPHOKINASE INCREASED [None]
